FAERS Safety Report 6919485-1 (Version None)
Quarter: 2010Q3

REPORT INFORMATION
  Report Type: 
  Country: None (occurrence: None)
  Receive Date: 20100811
  Receipt Date: 20100805
  Transmission Date: 20110219
  Serious: Yes (Death)
  Sender: FDA-Public Use
  Company Number: US-GILEAD-2010-0030911

PATIENT
  Sex: Male
  Weight: 118.04 kg

DRUGS (19)
  1. LETAIRIS [Suspect]
     Indication: PULMONARY ARTERIAL HYPERTENSION
     Route: 048
     Dates: start: 20100721
  2. REVATIO [Concomitant]
  3. FUROSEMIDE [Concomitant]
  4. SINGULAIR [Concomitant]
  5. ZOLOFT [Concomitant]
  6. COUMADIN [Concomitant]
  7. LIPITOR [Concomitant]
  8. LANTUS [Concomitant]
  9. NOVOLOG [Concomitant]
  10. ADVAIR DISKUS 100/50 [Concomitant]
  11. PRILOSEC [Concomitant]
  12. PULMICORT [Concomitant]
  13. OXYCODONE [Concomitant]
  14. BYSTOLIC [Concomitant]
  15. FLOMAX [Concomitant]
  16. SPIRIVA [Concomitant]
  17. DIGITEK [Concomitant]
  18. XOPENEX [Concomitant]
  19. FOLIC ACID [Concomitant]

REACTIONS (1)
  - DEATH [None]
